FAERS Safety Report 8658710 (Version 4)
Quarter: 2013Q2

REPORT INFORMATION
  Report Type: Spontaneous
  Country: JP (occurrence: JP)
  Receive Date: 20120710
  Receipt Date: 20130515
  Transmission Date: 20140414
  Serious: Yes (Hospitalization)
  Sender: FDA-Public Use
  Company Number: JP-ELI_LILLY_AND_COMPANY-JP201202004575

PATIENT
  Age: 69 Year
  Sex: Female

DRUGS (6)
  1. GEMZAR [Suspect]
     Indication: PANCREATIC CARCINOMA STAGE IV
     Dosage: 800 MG/M2, WEEKLY (1/W)
     Route: 042
     Dates: start: 20110608, end: 20110615
  2. GEMZAR [Suspect]
     Dosage: 1000 MG/M2, OTHER
     Route: 042
     Dates: start: 20110727, end: 20111228
  3. OMEPRAL [Concomitant]
     Dosage: 10 MG, QD
     Route: 048
  4. VITAMEDIN [Concomitant]
     Dosage: UNK
     Route: 048
  5. FOLIAMIN [Concomitant]
     Dosage: UNK
     Route: 048
  6. AMLODIN [Concomitant]
     Dosage: 2.5 MG, QD
     Route: 048

REACTIONS (5)
  - Gastric ulcer haemorrhage [Recovering/Resolving]
  - Interstitial lung disease [Recovered/Resolved]
  - Bone marrow failure [Recovering/Resolving]
  - Anaemia [Recovering/Resolving]
  - Pulmonary alveolar haemorrhage [Recovered/Resolved]
